FAERS Safety Report 24716490 (Version 1)
Quarter: 2024Q4

REPORT INFORMATION
  Report Type: Spontaneous
  Country: US (occurrence: None)
  Receive Date: 20241209
  Receipt Date: 20241209
  Transmission Date: 20250115
  Serious: No
  Sender: Public
  Company Number: None

PATIENT
  Age: 65 Year
  Sex: Female

DRUGS (1)
  1. HUMIRA [Suspect]
     Active Substance: ADALIMUMAB
     Indication: Ankylosing spondylitis
     Dosage: 40MG/0.4ML : EVERY 14 DAYS UNDER THE SKIN?
     Route: 058
     Dates: start: 202308

REACTIONS (3)
  - Drug dose omission by device [None]
  - Device leakage [None]
  - Drug delivery system malfunction [None]

NARRATIVE: CASE EVENT DATE: 20241207
